FAERS Safety Report 11779258 (Version 3)
Quarter: 2016Q1

REPORT INFORMATION
  Report Type: Spontaneous
  Country: US (occurrence: US)
  Receive Date: 20151125
  Receipt Date: 20160203
  Transmission Date: 20160525
  Serious: No
  Sender: FDA-Public Use
  Company Number: US-PFIZER INC-2015409415

PATIENT
  Age: 57 Year
  Sex: Female

DRUGS (1)
  1. ADVIL [Suspect]
     Active Substance: IBUPROFEN
     Dosage: UNK
     Dates: start: 2015, end: 2015

REACTIONS (4)
  - Product physical issue [Unknown]
  - Poor quality drug administered [Unknown]
  - Dysgeusia [Unknown]
  - Product taste abnormal [Unknown]
